FAERS Safety Report 7603082-9 (Version None)
Quarter: 2011Q3

REPORT INFORMATION
  Report Type: 
  Country: None (occurrence: None)
  Receive Date: 20110712
  Receipt Date: 20110707
  Transmission Date: 20111222
  Serious: Yes (Other)
  Sender: FDA-Public Use
  Company Number: DE-BRISTOL-MYERS SQUIBB COMPANY-15853195

PATIENT
  Age: 58 Year
  Sex: Female

DRUGS (1)
  1. ABILIFY [Suspect]
     Indication: SCHIZOAFFECTIVE DISORDER
     Dosage: 15MG FROM 05JUL10-19OCT10,10MG FROM 20OCT2010-11JAN11
     Route: 048
     Dates: start: 20100705, end: 20110111

REACTIONS (2)
  - NEURODERMATITIS [None]
  - CONDITION AGGRAVATED [None]
